FAERS Safety Report 6565950-9 (Version None)
Quarter: 2010Q1

REPORT INFORMATION
  Report Type: 
  Country: None (occurrence: None)
  Receive Date: 20100129
  Receipt Date: 20100129
  Transmission Date: 20100710
  Serious: Yes (Other)
  Sender: FDA-Public Use
  Company Number: None

PATIENT
  Age: 40 Year
  Sex: Female
  Weight: 104.3273 kg

DRUGS (1)
  1. ALDACTONE [Suspect]
     Indication: HYPERTENSION
     Dosage: DON'T RECALL -- USUAL 5-6 MONTHS

REACTIONS (3)
  - DRUG INEFFECTIVE [None]
  - HOSTILITY [None]
  - PRODUCT QUALITY ISSUE [None]
